FAERS Safety Report 22862109 (Version 5)
Quarter: 2023Q4

REPORT INFORMATION
  Report Type: Report from Study
  Country: CN (occurrence: CN)
  Receive Date: 20230824
  Receipt Date: 20231204
  Transmission Date: 20240110
  Serious: Yes (Hospitalization)
  Sender: FDA-Public Use
  Company Number: CN-PFM-2023-04645

PATIENT
  Age: 82 Year
  Sex: Male
  Weight: 57 kg

DRUGS (13)
  1. ENCORAFENIB [Suspect]
     Active Substance: ENCORAFENIB
     Indication: Non-small cell lung cancer metastatic
     Dosage: 450 MG, QD (1/DAY)
     Route: 048
     Dates: start: 20230620, end: 20230814
  2. BINIMETINIB [Suspect]
     Active Substance: BINIMETINIB
     Indication: Non-small cell lung cancer metastatic
     Dosage: 45 MG, BID (2/DAY)
     Route: 048
     Dates: start: 20230620, end: 20230814
  3. BINIMETINIB [Suspect]
     Active Substance: BINIMETINIB
     Dosage: 30 MG, BID (2/DAY)
     Route: 048
     Dates: start: 20230829
  4. FINASTERIDE [Concomitant]
     Active Substance: FINASTERIDE
     Indication: Benign prostatic hyperplasia
     Dosage: 5 MG, PRN (AS NEEDED)
     Route: 048
     Dates: start: 20230719
  5. ATORVASTATIN CALCIUM [Concomitant]
     Active Substance: ATORVASTATIN CALCIUM
     Indication: Coronary artery disease
     Dosage: 20 MG, QD (1/DAY)
     Route: 048
     Dates: start: 2018
  6. METOPROLOL SUCCINATE [Concomitant]
     Active Substance: METOPROLOL SUCCINATE
     Indication: Coronary artery disease
     Dosage: 47.5 MG, QD (1/DAY) (SUSTAINED RELEASE TABLETS)
     Route: 048
     Dates: start: 2018
  7. SODIUM HYALURONATE [Concomitant]
     Active Substance: HYALURONATE SODIUM
     Indication: Prophylaxis
     Dosage: MODERATE (UNKNOWN DOSE), ML, PRN (AS NEEDED)
     Route: 047
     Dates: start: 2020, end: 20230815
  8. LORATADINE [Concomitant]
     Active Substance: LORATADINE
     Indication: Rash
     Dosage: 10 MG, PRN (AS NEEDED)
     Route: 048
     Dates: start: 20230723, end: 20230813
  9. PRANOPROFEN [Concomitant]
     Active Substance: PRANOPROFEN
     Indication: Prophylaxis
     Dosage: MODERATE (UNKNOWN DOSE), ML, PRN (AS NEEDED)
     Route: 047
     Dates: start: 20230814
  10. AZELASTINE HYDROCHLORIDE [Concomitant]
     Active Substance: AZELASTINE HYDROCHLORIDE
     Indication: Prophylaxis
     Dosage: MODERATE (UNKNOWN DOSE), ML, PRN (AS NEEDED)
     Route: 047
     Dates: start: 20230814
  11. ESOMEPRAZOLE MAGNESIUM [Concomitant]
     Active Substance: ESOMEPRAZOLE\ESOMEPRAZOLE MAGNESIUM\ESOMEPRAZOLE MAGNESIUM DIHYDRATE
     Indication: Prophylaxis
     Dosage: 20 MG, QD (1/DAY) (ENTERIC-COATED)
     Route: 048
     Dates: start: 20230814, end: 20230815
  12. AMINOPHYLLINE\CHLORPHENIRAMINE MALEATE\METHOXYPHENAMINE HYDROCHLORIDE\ [Concomitant]
     Active Substance: AMINOPHYLLINE\CHLORPHENIRAMINE MALEATE\METHOXYPHENAMINE HYDROCHLORIDE\NOSCAPINE
     Indication: Cough
     Dosage: 12.5 MG, PRN
     Route: 048
     Dates: start: 20230605
  13. COMPOUND GLYCYRRHIZA [AMMONIA;BENZOIC ACID;CAMPHOR;GLYCEROL;GLYCYRRHIZ [Concomitant]
     Indication: Cough
     Dosage: 10 ML, PRN (SOLUTION)
     Route: 048
     Dates: start: 20230620, end: 20230813

REACTIONS (1)
  - Interstitial lung disease [Recovered/Resolved]

NARRATIVE: CASE EVENT DATE: 20230816
